FAERS Safety Report 6255963-9 (Version None)
Quarter: 2009Q3

REPORT INFORMATION
  Report Type: 
  Country: None (occurrence: None)
  Receive Date: 20090706
  Receipt Date: 20090625
  Transmission Date: 20100115
  Serious: Yes (Other)
  Sender: FDA-Public Use
  Company Number: ES-BRISTOL-MYERS SQUIBB COMPANY-14684773

PATIENT
  Age: 69 Year
  Sex: Female

DRUGS (2)
  1. METFORMIN HCL [Suspect]
     Indication: DIABETES MELLITUS
     Dosage: STRENGTH-850MG
     Route: 048
     Dates: start: 20080801, end: 20080801
  2. PREDNISONE [Suspect]
     Indication: BICYTOPENIA
     Route: 048
     Dates: start: 20080626, end: 20080801

REACTIONS (2)
  - DIARRHOEA [None]
  - HYPOKALAEMIA [None]
